FAERS Safety Report 6518031-4 (Version None)
Quarter: 2009Q4

REPORT INFORMATION
  Report Type: 
  Country: None (occurrence: None)
  Receive Date: 20091224
  Receipt Date: 20091214
  Transmission Date: 20100525
  Serious: Yes (Death, Other)
  Sender: FDA-Public Use
  Company Number: JP-BRISTOL-MYERS SQUIBB COMPANY-14894034

PATIENT
  Age: 68 Year
  Sex: Male

DRUGS (8)
  1. HEPARIN SODIUM [Suspect]
     Indication: PULMONARY CONGESTION
  2. HEPARIN SODIUM [Suspect]
     Indication: CARDIAC FAILURE
  3. HEPARIN SODIUM [Suspect]
     Indication: CEREBRAL INFARCTION
  4. WARFARIN SODIUM [Suspect]
     Indication: ANTICOAGULANT THERAPY
  5. ARGATROBAN [Suspect]
     Indication: ANTICOAGULANT THERAPY
  6. FUROSEMIDE [Suspect]
     Indication: PULMONARY CONGESTION
  7. FUROSEMIDE [Suspect]
     Indication: CEREBRAL INFARCTION
  8. FUROSEMIDE [Suspect]
     Indication: CARDIAC FAILURE

REACTIONS (3)
  - CARDIAC FAILURE [None]
  - HEPARIN-INDUCED THROMBOCYTOPENIA [None]
  - RENAL FAILURE [None]
